FAERS Safety Report 8052694-X (Version None)
Quarter: 2012Q1

REPORT INFORMATION
  Report Type: 
  Country: None (occurrence: None)
  Receive Date: 20120118
  Receipt Date: 20120118
  Transmission Date: 20120608
  Serious: Yes (Life-Threatening)
  Sender: FDA-Public Use
  Company Number: None

PATIENT
  Age: 58 Year
  Sex: Female
  Weight: 52.163 kg

DRUGS (1)
  1. MULTIHANCE [Suspect]
     Indication: NUCLEAR MAGNETIC RESONANCE IMAGING
     Dosage: 30 CC
     Route: 042
     Dates: start: 20111109, end: 20111109

REACTIONS (6)
  - SKIN DISCOLOURATION [None]
  - NEUROPATHY PERIPHERAL [None]
  - PYREXIA [None]
  - PRURITUS [None]
  - BURNING SENSATION [None]
  - RASH ERYTHEMATOUS [None]
